FAERS Safety Report 14415693 (Version 3)
Quarter: 2018Q1

REPORT INFORMATION
  Report Type: Report from Study
  Country: JP (occurrence: JP)
  Receive Date: 20180122
  Receipt Date: 20180309
  Transmission Date: 20180509
  Serious: Yes (Death)
  Sender: FDA-Public Use
  Company Number: JP-BEH-2018087026

PATIENT
  Age: 60 Year
  Sex: Male
  Weight: 100 kg

DRUGS (9)
  1. FLUITRAN [Concomitant]
     Active Substance: TRICHLORMETHIAZIDE
     Dosage: UNK, ORAL PREPARATION (UNDEF FORM)
     Route: 048
     Dates: start: 20171214
  2. LANSOPRAZOLE. [Concomitant]
     Active Substance: LANSOPRAZOLE
     Dosage: UNK, ORAL PREPARATION (UNDEF FORM)
     Route: 048
     Dates: start: 20171214
  3. BERIPLEX P/N [Suspect]
     Active Substance: COAGULATION FACTOR IX HUMAN\COAGULATION FACTOR VII HUMAN\COAGULATION FACTOR X HUMAN\PROTEIN C\PROTEIN S HUMAN\PROTHROMBIN
     Indication: HAEMORRHAGE
     Dosage: 2500 IU, UNK, INJECTION
     Route: 042
     Dates: start: 20171215, end: 20171215
  4. ATENOLOL. [Concomitant]
     Active Substance: ATENOLOL
     Dosage: UNK, ORAL PREPARATIN (UNDEF FORM)
     Route: 048
     Dates: start: 20171214
  5. ALLOPURINOL. [Concomitant]
     Active Substance: ALLOPURINOL
     Dosage: UNK, ORAL PREPARATION (UNDEF FORM)
     Route: 048
     Dates: start: 20171214
  6. WARFARIN [Concomitant]
     Active Substance: WARFARIN
     Indication: ATRIAL FIBRILLATION
     Dosage: 5 MG, UNK, ORAL PREPARATION (UNDEF FORM)
     Route: 048
     Dates: start: 201307, end: 20171214
  7. CANDESARTAN CILEXETIL. [Concomitant]
     Active Substance: CANDESARTAN CILEXETIL
     Dosage: UNK, ORAL PREPARATION (UNDEF FORM)
     Route: 048
     Dates: start: 20171214
  8. ATORVASTATIN CALCIUM. [Concomitant]
     Active Substance: ATORVASTATIN CALCIUM
     Dosage: UNK, ORAL PREPARATION (UNDEF FORM)
     Route: 048
     Dates: start: 20171214
  9. WARFARIN [Concomitant]
     Active Substance: WARFARIN
     Indication: ANTICOAGULANT THERAPY

REACTIONS (2)
  - Brain oedema [Fatal]
  - Cerebellar haemorrhage [Fatal]
